FAERS Safety Report 7039790-0 (Version None)
Quarter: 2010Q4

REPORT INFORMATION
  Report Type: 
  Country: None (occurrence: None)
  Receive Date: 20101012
  Receipt Date: 20101006
  Transmission Date: 20110411
  Serious: Yes (Hospitalization)
  Sender: FDA-Public Use
  Company Number: US-MERCK-1009USA04521

PATIENT
  Age: 35 Year
  Sex: Female
  Weight: 151 kg

DRUGS (27)
  1. JANUVIA [Suspect]
     Indication: TYPE 2 DIABETES MELLITUS
     Route: 048
     Dates: start: 20100101, end: 20100818
  2. METFORMIN [Concomitant]
     Route: 065
  3. ACTOS [Concomitant]
     Route: 065
  4. TRICOR [Concomitant]
     Route: 065
  5. NIACIN [Concomitant]
     Route: 065
  6. LOVASTATIN [Concomitant]
     Route: 048
  7. LISINOPRIL [Concomitant]
     Route: 048
  8. DILTIAZEM HYDROCHLORIDE [Concomitant]
     Route: 065
  9. LASIX [Concomitant]
     Route: 065
  10. XANAX [Concomitant]
     Route: 065
  11. RISPERIDONE [Concomitant]
     Route: 065
  12. ZYRTEC [Concomitant]
     Route: 065
  13. PROTONIX [Concomitant]
     Route: 065
  14. TIZANIDINE HYDROCHLORIDE [Concomitant]
     Route: 065
  15. CHLORPHENIRAMINE [Concomitant]
     Route: 065
  16. OXCARBAZEPINE [Concomitant]
     Route: 065
  17. LAMOTRIGINE [Concomitant]
     Route: 065
  18. TOPAMAX [Concomitant]
     Route: 065
  19. VOLTAREN [Concomitant]
     Route: 065
  20. ZOMIG [Concomitant]
     Route: 065
  21. FOLIC ACID [Concomitant]
     Route: 065
  22. CYANOCOBALAMIN [Concomitant]
     Route: 065
  23. ALBUTEROL [Concomitant]
     Route: 055
  24. DETROL [Concomitant]
     Route: 065
  25. NASONEX [Concomitant]
     Route: 055
  26. MIRTAZAPINE [Concomitant]
     Route: 065
  27. CAFFEINE AND ACETAMINOPHEN AND BUTALBITAL [Concomitant]
     Route: 065

REACTIONS (1)
  - PANCREATITIS [None]
